FAERS Safety Report 11400644 (Version 10)
Quarter: 2019Q3

REPORT INFORMATION
  Report Type: Report from Study
  Country: US (occurrence: US)
  Receive Date: 20150820
  Receipt Date: 20190822
  Transmission Date: 20191004
  Serious: Yes (Other)
  Sender: FDA-Public Use
  Company Number: PHHY2015US070914

PATIENT
  Age: 33 Year
  Sex: Female

DRUGS (1)
  1. GILENYA [Suspect]
     Active Substance: FINGOLIMOD HYDROCHLORIDE
     Indication: MULTIPLE SCLEROSIS
     Dosage: UNK, QD
     Route: 048

REACTIONS (13)
  - Acne [Unknown]
  - Solar lentigo [Unknown]
  - Urinary tract infection [Recovered/Resolved]
  - Furuncle [Recovered/Resolved]
  - Viral labyrinthitis [Recovered/Resolved]
  - Viral infection [Recovered/Resolved]
  - Back pain [Recovered/Resolved]
  - Migraine [Recovered/Resolved]
  - Tinea versicolour [Unknown]
  - Lymphopenia [Unknown]
  - Migraine [Unknown]
  - Blood alkaline phosphatase increased [Unknown]
  - Dizziness [Recovered/Resolved]

NARRATIVE: CASE EVENT DATE: 20150115
